FAERS Safety Report 16365716 (Version 2)
Quarter: 2019Q2

REPORT INFORMATION
  Report Type: Spontaneous
  Country: SI (occurrence: SI)
  Receive Date: 20190529
  Receipt Date: 20190625
  Transmission Date: 20190711
  Serious: Yes (Other)
  Sender: FDA-Public Use
  Company Number: SI-AMGEN-SVNSP2019053205

PATIENT
  Sex: Female
  Weight: 61 kg

DRUGS (4)
  1. CALCIUM [Concomitant]
     Active Substance: CALCIUM
     Dosage: UNK
  2. XGEVA [Suspect]
     Active Substance: DENOSUMAB
     Indication: METASTASES TO BONE
  3. XGEVA [Suspect]
     Active Substance: DENOSUMAB
     Indication: OVARIAN CANCER METASTATIC
     Dosage: 120 MILLIGRAM (4-6 WEEKS)
     Route: 058
     Dates: start: 20181207
  4. VITAMINE D [Concomitant]
     Active Substance: CHOLECALCIFEROL
     Dosage: UNK

REACTIONS (5)
  - Mobility decreased [Unknown]
  - Bone pain [Recovered/Resolved]
  - Femur fracture [Unknown]
  - Refusal of treatment by patient [Unknown]
  - Myalgia [Recovered/Resolved]

NARRATIVE: CASE EVENT DATE: 20190104
